FAERS Safety Report 9424785 (Version 3)
Quarter: 2014Q1

REPORT INFORMATION
  Report Type: Spontaneous
  Country: CN (occurrence: None)
  Receive Date: 20130724
  Receipt Date: 20140226
  Transmission Date: 20141002
  Serious: Yes (Other)
  Sender: FDA-Public Use
  Company Number: VAL_02653_2013

PATIENT
  Age: 50 Year
  Sex: Male

DRUGS (1)
  1. ROCALTROL [Suspect]
     Indication: HYPOPARATHYROIDISM
     Route: 048
     Dates: start: 201209

REACTIONS (3)
  - Blood calcium decreased [None]
  - Product counterfeit [None]
  - Drug ineffective [None]
